FAERS Safety Report 6087017-9 (Version None)
Quarter: 2009Q1

REPORT INFORMATION
  Report Type: 
  Country: None (occurrence: None)
  Receive Date: 20090223
  Receipt Date: 20090209
  Transmission Date: 20090719
  Serious: Yes (Other)
  Sender: FDA-Public Use
  Company Number: GB-AVENTIS-200911529GDDC

PATIENT

DRUGS (3)
  1. GLYBURIDE [Suspect]
  2. ORAL BLOOD GLUCOSE LOWERING DRUGS [Suspect]
  3. PLACEBO [Suspect]

REACTIONS (3)
  - ANGINA PECTORIS [None]
  - CHOLECYSTITIS CHRONIC [None]
  - HYPOGLYCAEMIA [None]
